FAERS Safety Report 12755639 (Version 1)
Quarter: 2016Q3

REPORT INFORMATION
  Report Type: Report from Study
  Country: US (occurrence: US)
  Receive Date: 20160916
  Receipt Date: 20160916
  Transmission Date: 20161109
  Serious: Yes (Hospitalization)
  Sender: FDA-Public Use
  Company Number: US-ABBVIE-16K-163-1726432-00

PATIENT
  Age: 47 Year
  Sex: Female

DRUGS (3)
  1. LISINOPRIL. [Concomitant]
     Active Substance: LISINOPRIL
     Indication: PRODUCT USED FOR UNKNOWN INDICATION
  2. HUMIRA [Suspect]
     Active Substance: ADALIMUMAB
     Indication: CROHN^S DISEASE
     Route: 058
  3. METHOTREXATE. [Concomitant]
     Active Substance: METHOTREXATE
     Indication: PRODUCT USED FOR UNKNOWN INDICATION

REACTIONS (9)
  - Vomiting [Unknown]
  - Oral mucosal blistering [Unknown]
  - Mouth ulceration [Unknown]
  - Weight decreased [Unknown]
  - Malaise [Unknown]
  - Cough [Unknown]
  - Dysgeusia [Unknown]
  - Pyrexia [Unknown]
  - Oropharyngeal pain [Unknown]
